FAERS Safety Report 7703439 (Version 5)
Quarter: 2012Q4

REPORT INFORMATION
  Report Type: 
  Country: JP (occurrence: US)
  Receive Date: 20101210
  Receipt Date: 20120907
  Transmission Date: 20130627
  Serious: Yes (Hospitalization, Other)
  Sender: FDA-Public Use
  Company Number: US-JNJFOC-20100804649

PATIENT
  Age: 64 None
  Sex: Male

DRUGS (4)
  1. LEVAQUIN [Suspect]
     Indication: PNEUMONITIS
     Route: 048
     Dates: start: 20040101, end: 20061231
  2. LEVAQUIN [Suspect]
     Indication: SINUSITIS
     Route: 048
     Dates: start: 20040101, end: 20061231
  3. LEVAQUIN [Suspect]
     Indication: INFECTION
     Route: 048
     Dates: start: 20040101, end: 20061231
  4. PREDNISONE [Suspect]
     Indication: PRODUCT USED FOR UNKNOWN INDICATION
     Route: 065

REACTIONS (8)
  - Rotator cuff syndrome [Recovering/Resolving]
  - Tendonitis [Unknown]
  - Rotator cuff syndrome [Unknown]
  - Bone pain [Unknown]
  - Arthralgia [Unknown]
  - Myalgia [Unknown]
  - Drug effect decreased [Unknown]
  - Drug ineffective [Unknown]
